FAERS Safety Report 20016543 (Version 1)
Quarter: 2021Q4

REPORT INFORMATION
  Report Type: Spontaneous
  Country: US (occurrence: None)
  Receive Date: 20211103
  Receipt Date: 20211103
  Transmission Date: 20220303
  Serious: No
  Sender: FDA-Public Use
  Company Number: None

PATIENT
  Age: 60 Year
  Sex: Male
  Weight: 88 kg

DRUGS (1)
  1. FUROSEMIDE [Suspect]
     Active Substance: FUROSEMIDE
     Indication: Peripheral swelling
     Dosage: FREQUENCY : ONCE;?
     Route: 042
     Dates: start: 20201214, end: 20201214

REACTIONS (4)
  - Lip swelling [None]
  - Peripheral swelling [None]
  - Respiratory distress [None]
  - Angioedema [None]

NARRATIVE: CASE EVENT DATE: 20201214
